FAERS Safety Report 15867558 (Version 2)
Quarter: 2022Q1

REPORT INFORMATION
  Report Type: Spontaneous
  Country: US (occurrence: US)
  Receive Date: 20190125
  Receipt Date: 20220225
  Transmission Date: 20220423
  Serious: No
  Sender: FDA-Public Use
  Company Number: US-PFIZER INC-2019033913

PATIENT
  Age: 44 Year
  Sex: Male

DRUGS (2)
  1. SOMAVERT [Suspect]
     Active Substance: PEGVISOMANT
     Indication: Acromegaly
     Dosage: 30 MG, DAILY
     Dates: start: 20171013
  2. SOMAVERT [Suspect]
     Active Substance: PEGVISOMANT
     Indication: Gigantism

REACTIONS (11)
  - Paraesthesia [Unknown]
  - Headache [Unknown]
  - Arthralgia [Unknown]
  - Hyperhidrosis [Unknown]
  - Polydipsia [Unknown]
  - Polyuria [Unknown]
  - Fatigue [Unknown]
  - Hypoaesthesia [Unknown]
  - Hand deformity [Unknown]
  - Nose deformity [Unknown]
  - Product dose omission issue [Unknown]
